FAERS Safety Report 14721108 (Version 1)
Quarter: 2018Q1

REPORT INFORMATION
  Report Type: Spontaneous
  Country: US (occurrence: US)
  Receive Date: 20180331
  Receipt Date: 20180331
  Transmission Date: 20180509
  Serious: No
  Sender: FDA-Public Use
  Company Number: None

PATIENT
  Age: 63 Year
  Sex: Female

DRUGS (17)
  1. SPIRONOLACT [Concomitant]
     Active Substance: SPIRONOLACTONE
  2. ALLOPURINOL. [Concomitant]
     Active Substance: ALLOPURINOL
  3. CYCLOBENZAPR [Concomitant]
     Active Substance: CYCLOBENZAPRINE
  4. OMEPRAZOLE. [Concomitant]
     Active Substance: OMEPRAZOLE
  5. FUROSEMIDE. [Concomitant]
     Active Substance: FUROSEMIDE
  6. AMPICILLIN [Concomitant]
     Active Substance: AMPICILLIN
  7. BREO ELLIPTA [Concomitant]
     Active Substance: FLUTICASONE FUROATE\VILANTEROL TRIFENATATE
  8. SYNTHROID [Concomitant]
     Active Substance: LEVOTHYROXINE SODIUM
  9. MONTELUKAST [Concomitant]
     Active Substance: MONTELUKAST SODIUM
  10. LACTULOSE. [Concomitant]
     Active Substance: LACTULOSE
  11. OCALIVA [Suspect]
     Active Substance: OBETICHOLIC ACID
     Indication: PRIMARY BILIARY CHOLANGITIS
     Route: 048
     Dates: start: 20170410
  12. SERTRALINE [Concomitant]
     Active Substance: SERTRALINE HYDROCHLORIDE
  13. MODAFINIL. [Concomitant]
     Active Substance: MODAFINIL
  14. ROPINIROLE. [Concomitant]
     Active Substance: ROPINIROLE
  15. WARFARIN [Concomitant]
     Active Substance: WARFARIN
  16. MYRBETRIQ [Concomitant]
     Active Substance: MIRABEGRON
  17. NITROGLYCERIN. [Concomitant]
     Active Substance: NITROGLYCERIN

REACTIONS (3)
  - Blood alkaline phosphatase increased [None]
  - Laboratory test abnormal [None]
  - Gamma-glutamyltransferase increased [None]
